FAERS Safety Report 5067335-3 (Version None)
Quarter: 2006Q3

REPORT INFORMATION
  Report Type: 
  Country: None (occurrence: None)
  Receive Date: 20060714
  Receipt Date: 20060516
  Transmission Date: 20061208
  Serious: No
  Sender: FDA-Public Use
  Company Number: 2006SP002388

PATIENT
  Age: 73 Year
  Sex: Female
  Weight: 65.318 kg

DRUGS (2)
  1. LUNESTA [Suspect]
     Indication: INSOMNIA
     Dosage: 3 MG 1X ORAL
     Route: 048
     Dates: start: 20060501, end: 20060501
  2. SONATA [Concomitant]

REACTIONS (1)
  - DIZZINESS [None]
